FAERS Safety Report 7099598-7 (Version None)
Quarter: 2010Q4

REPORT INFORMATION
  Report Type: 
  Country: None (occurrence: None)
  Receive Date: 20101105
  Receipt Date: 20101025
  Transmission Date: 20110411
  Serious: Yes (Hospitalization)
  Sender: FDA-Public Use
  Company Number: 1000016834

PATIENT
  Age: 87 Year
  Sex: Female

DRUGS (8)
  1. CITALOPRAM HYDROBROMIDE [Suspect]
     Indication: DEPRESSION
     Dates: start: 20100830, end: 20100903
  2. OMEPRAZOLE [Suspect]
     Indication: ABDOMINAL PAIN UPPER
     Dosage: ORAL
     Route: 048
     Dates: start: 20100820
  3. FORTZAAR (LOSARTAN, HYDROCHLOROTHIAZIDE) (LOSARTAN, HYDROCHLOROTHIAZID [Concomitant]
  4. MOXONIDINE (MOXONIDINE)(MOXONIDINE) [Concomitant]
  5. NAFTIDROFURYL (NAFTIDROFURYL) (NAFTIDROFURYL) [Concomitant]
  6. LACTULOSE (LACTULOSE) (LACTULOSE) [Concomitant]
  7. DAFALGAN (PARACETAMOL) (PARACETAMOL) [Concomitant]
  8. MOBIC [Concomitant]

REACTIONS (8)
  - ABDOMINAL PAIN UPPER [None]
  - CONFUSIONAL STATE [None]
  - DECREASED APPETITE [None]
  - DIARRHOEA [None]
  - DYSPEPSIA [None]
  - HYPONATRAEMIA [None]
  - SPUTUM ABNORMAL [None]
  - URINARY TRACT INFECTION [None]
